FAERS Safety Report 22913188 (Version 2)
Quarter: 2024Q2

REPORT INFORMATION
  Report Type: Report from Study
  Country: PH (occurrence: PH)
  Receive Date: 20230906
  Receipt Date: 20240412
  Transmission Date: 20240716
  Serious: Yes (Death)
  Sender: FDA-Public Use
  Company Number: PH-002147023-NVSC2023PH192757

PATIENT
  Age: 48 Year
  Sex: Female

DRUGS (3)
  1. RIBOCICLIB [Suspect]
     Active Substance: RIBOCICLIB
     Indication: Breast cancer stage IV
     Dosage: 200 MG, OTHER (CLINICAL ABSTRACT SEP 5, 2022: 200 MG/TAB, 600 MG RX SEP 8, 2022: 200 MG/CAP, 3 CAPS/
     Route: 048
  2. RIBOCICLIB [Suspect]
     Active Substance: RIBOCICLIB
     Indication: Metastases to bone
  3. LETROZOLE [Concomitant]
     Active Substance: LETROZOLE
     Indication: Product used for unknown indication
     Dosage: 2.5 MG (FOR 100 DAYS)
     Route: 065

REACTIONS (3)
  - Metastasis [Fatal]
  - Cardiac arrest [Fatal]
  - Inappropriate schedule of product administration [Unknown]
